FAERS Safety Report 6829398-1 (Version None)
Quarter: 2010Q3

REPORT INFORMATION
  Report Type: 
  Country: None (occurrence: None)
  Receive Date: 20100709
  Receipt Date: 20070305
  Transmission Date: 20110219
  Serious: No
  Sender: FDA-Public Use
  Company Number: US-PFIZER INC-2007017548

PATIENT
  Sex: Female
  Weight: 65.77 kg

DRUGS (9)
  1. CHANTIX [Suspect]
     Indication: SMOKING CESSATION THERAPY
     Dates: start: 20070101, end: 20070101
  2. CLONAZEPAM [Suspect]
     Indication: ANXIETY
  3. DEPAKOTE [Concomitant]
  4. LEVOXYL [Concomitant]
     Indication: HYPOTHYROIDISM
  5. HALDOL [Concomitant]
  6. EFFEXOR [Concomitant]
  7. TEMAZEPAM [Concomitant]
  8. LOVASTATIN [Concomitant]
  9. LUTEIN [Concomitant]

REACTIONS (4)
  - ABNORMAL DREAMS [None]
  - ANXIETY [None]
  - DRUG INEFFECTIVE [None]
  - TOBACCO USER [None]
